FAERS Safety Report 25542545 (Version 1)
Quarter: 2025Q3

REPORT INFORMATION
  Report Type: Spontaneous
  Country: EU (occurrence: EU)
  Receive Date: 20250711
  Receipt Date: 20250711
  Transmission Date: 20251021
  Serious: Yes (Hospitalization)
  Sender: RANBAXY
  Company Number: EU-AFSSAPS-TO2025000456

PATIENT
  Age: 91 Year
  Sex: Female

DRUGS (2)
  1. TAMSULOSIN [Suspect]
     Active Substance: TAMSULOSIN
     Indication: Urinary retention
     Dosage: 0.4 MILLIGRAM, DAILY
     Route: 048
     Dates: start: 20250219, end: 20250221
  2. AUGMENTIN [Suspect]
     Active Substance: AMOXICILLIN\CLAVULANATE POTASSIUM
     Indication: Lung disorder
     Dosage: 3 DOSAGE FORM, DAILY, 1G/125MG
     Route: 048
     Dates: start: 20250216, end: 20250219

REACTIONS (1)
  - Hepatitis [Recovering/Resolving]

NARRATIVE: CASE EVENT DATE: 20250221
